FAERS Safety Report 15140453 (Version 1)
Quarter: 2018Q3

REPORT INFORMATION
  Report Type: Spontaneous
  Country: US (occurrence: US)
  Receive Date: 20180618
  Receipt Date: 20180618
  Transmission Date: 20181010
  Serious: Yes (Death)
  Sender: FDA-Public Use
  Company Number: None

PATIENT
  Age: 79 Year
  Sex: Male

DRUGS (17)
  1. FOLIC ACID 1 MG [Concomitant]
  2. AMARYL 4MG [Concomitant]
  3. ISOSORBIDE MONONITRATE 60MG ER [Concomitant]
  4. NITROGLYCERIN 0.4MG [Concomitant]
  5. PROPRANOLOL 10MG [Concomitant]
  6. REPATHA [Suspect]
     Active Substance: EVOLOCUMAB
     Indication: HYPERCHOLESTEROLAEMIA
     Route: 058
     Dates: start: 20180330
  7. BUMETANIDE 1MG [Concomitant]
     Active Substance: BUMETANIDE
  8. RANEXA 1000MG [Concomitant]
  9. TOUJEO 300IU/ML [Concomitant]
  10. VIAGRA [Concomitant]
     Active Substance: SILDENAFIL CITRATE
  11. EFFIENT [Concomitant]
     Active Substance: PRASUGREL HYDROCHLORIDE
  12. FISH OIL 500MG [Concomitant]
  13. VITAMIN E 400 UNITS [Concomitant]
  14. ASPIRIN 81MG [Concomitant]
     Active Substance: ASPIRIN
  15. COQ10 100MG [Concomitant]
  16. PANTOPRAZOLE 40MG [Concomitant]
     Active Substance: PANTOPRAZOLE SODIUM
  17. VITAMIN D3 1000UNITS [Concomitant]

REACTIONS (1)
  - Death [None]

NARRATIVE: CASE EVENT DATE: 20180611
